FAERS Safety Report 8015846-0 (Version None)
Quarter: 2011Q4

REPORT INFORMATION
  Report Type: 
  Country: None (occurrence: None)
  Receive Date: 20111230
  Receipt Date: 20111222
  Transmission Date: 20120403
  Serious: Yes (Other)
  Sender: FDA-Public Use
  Company Number: VE-ROCHE-1025992

PATIENT
  Sex: Female

DRUGS (2)
  1. XOLAIR [Suspect]
     Indication: ASTHMA
     Dates: start: 20110201
  2. STEROIDS NOS [Concomitant]

REACTIONS (3)
  - ASTHMA [None]
  - CHEST PAIN [None]
  - HYPERSENSITIVITY [None]
